FAERS Safety Report 21849053 (Version 1)
Quarter: 2023Q1

REPORT INFORMATION
  Report Type: Report from Study
  Country: AU (occurrence: AU)
  Receive Date: 20230111
  Receipt Date: 20230111
  Transmission Date: 20230417
  Serious: Yes (Hospitalization, Other)
  Sender: FDA-Public Use
  Company Number: AU-GLAXOSMITHKLINE-AU2022APC183892

PATIENT

DRUGS (1)
  1. MEPOLIZUMAB [Suspect]
     Active Substance: MEPOLIZUMAB
     Indication: Asthma
     Dosage: 100 MG, Z ( EVERY 4 WEEK)
     Route: 058
     Dates: start: 20220414

REACTIONS (5)
  - Lower respiratory tract infection [Unknown]
  - Pharyngitis [Unknown]
  - Condition aggravated [Unknown]
  - Aspiration [Unknown]
  - Product dose omission issue [Unknown]
